FAERS Safety Report 12637423 (Version 1)
Quarter: 2016Q3

REPORT INFORMATION
  Report Type: Spontaneous
  Country: US (occurrence: US)
  Receive Date: 20160809
  Receipt Date: 20160809
  Transmission Date: 20161109
  Serious: No
  Sender: FDA-Public Use
  Company Number: US-BEH-2016061532

PATIENT
  Sex: Female
  Weight: 53 kg

DRUGS (21)
  1. SODIUM CHLORIDE. [Concomitant]
     Active Substance: SODIUM CHLORIDE
  2. PREDNISONE. [Concomitant]
     Active Substance: PREDNISONE
  3. TOBRADEX [Concomitant]
     Active Substance: DEXAMETHASONE\TOBRAMYCIN
  4. MOMETASONE FUROATE. [Concomitant]
     Active Substance: MOMETASONE FUROATE
  5. MULTI-VITAMIN [Concomitant]
     Active Substance: .ALPHA.-TOCOPHEROL ACETATE, DL-\ASCORBIC ACID\CYANOCOBALAMIN\FLUORIDE ION\FOLIC ACID\NIACIN\PYRIDOXINE\RIBOFLAVIN\THIAMINE\VITAMIN A\VITAMIN D
  6. GRAPE SEED EXTRACT [Concomitant]
     Active Substance: GRAPE SEED EXTRACT
  7. EPIPEN [Concomitant]
     Active Substance: EPINEPHRINE
  8. ASPIRIN. [Concomitant]
     Active Substance: ASPIRIN
  9. PREDNISONE AC [Concomitant]
  10. DOXYCYCLINE. [Concomitant]
     Active Substance: DOXYCYCLINE
  11. PRIVIGEN [Suspect]
     Active Substance: HUMAN IMMUNOGLOBULIN G
     Indication: HYPOGAMMAGLOBULINAEMIA
     Route: 042
     Dates: start: 20160118
  12. DIPHENHYDRAMINE. [Concomitant]
     Active Substance: DIPHENHYDRAMINE
  13. PROAIR HFA [Concomitant]
     Active Substance: ALBUTEROL SULFATE
  14. ACETAMINOPHEN. [Concomitant]
     Active Substance: ACETAMINOPHEN
  15. LIDOCAINE. [Concomitant]
     Active Substance: LIDOCAINE
  16. XANAX [Concomitant]
     Active Substance: ALPRAZOLAM
  17. PROBIOTIC [Concomitant]
     Active Substance: PROBIOTICS NOS
  18. PRIVIGEN [Suspect]
     Active Substance: HUMAN IMMUNOGLOBULIN G
     Indication: HYPOGAMMAGLOBULINAEMIA
     Route: 042
     Dates: start: 20160118
  19. OMEGA 3 [Concomitant]
     Active Substance: OMEGA-3 FATTY ACIDS
  20. SERTRALINE [Concomitant]
     Active Substance: SERTRALINE HYDROCHLORIDE
  21. PROPIONATE [Concomitant]

REACTIONS (1)
  - Headache [Unknown]
